FAERS Safety Report 8510541-3 (Version None)
Quarter: 2012Q3

REPORT INFORMATION
  Report Type: 
  Country: None (occurrence: None)
  Receive Date: 20120716
  Receipt Date: 20120704
  Transmission Date: 20120928
  Serious: Yes (Other)
  Sender: FDA-Public Use
  Company Number: NZ-AMGEN-NZLSP2012031242

PATIENT
  Age: 60 Year
  Sex: Female

DRUGS (5)
  1. PREDNISONE [Concomitant]
     Indication: RHEUMATOID ARTHRITIS
     Dosage: 7.5 MG, 1X/DAY
     Route: 048
  2. FOLIC ACID [Concomitant]
     Indication: RHEUMATOID ARTHRITIS
     Dosage: 5 MG, WEEKLY
     Route: 048
  3. ENBREL [Suspect]
     Indication: RHEUMATOID ARTHRITIS
     Dosage: 50 MG, WEEKLY
     Route: 058
     Dates: start: 20110501, end: 20120401
  4. METHOTREXATE [Concomitant]
     Indication: RHEUMATOID ARTHRITIS
     Dosage: 15 MG, 1X/DAY
     Route: 048
  5. DIDRONEL [Concomitant]
     Indication: SUPPLEMENTATION THERAPY
     Dosage: 400 MG, UNK
     Route: 048

REACTIONS (2)
  - MALIGNANT MELANOMA [None]
  - DRUG EFFECT DECREASED [None]
